FAERS Safety Report 6264671-X (Version None)
Quarter: 2009Q3

REPORT INFORMATION
  Report Type: 
  Country: None (occurrence: None)
  Receive Date: 20090710
  Receipt Date: 20090702
  Transmission Date: 20100115
  Serious: Yes (Other)
  Sender: FDA-Public Use
  Company Number: PHHY2009PE17134

PATIENT
  Sex: Male

DRUGS (3)
  1. EXELON [Suspect]
     Indication: DEMENTIA ALZHEIMER'S TYPE
     Dosage: UNK
     Route: 062
     Dates: start: 20090415, end: 20090514
  2. ALPRAZOLAM [Concomitant]
  3. NOCTURA [Concomitant]
     Dosage: 15 MG, QD
     Dates: start: 20050101

REACTIONS (1)
  - AGGRESSION [None]
